FAERS Safety Report 7055151-2 (Version None)
Quarter: 2010Q4

REPORT INFORMATION
  Report Type: 
  Country: None (occurrence: None)
  Receive Date: 20101021
  Receipt Date: 20101008
  Transmission Date: 20110411
  Serious: Yes (Other)
  Sender: FDA-Public Use
  Company Number: PHHY2010FR65148

PATIENT
  Sex: Male
  Weight: 60 kg

DRUGS (2)
  1. EXJADE [Suspect]
     Indication: HAEMOCHROMATOSIS
     Dosage: 1000 MG, DAILY
     Route: 048
     Dates: start: 20100224, end: 20100430
  2. EXJADE [Suspect]
     Indication: HAEMOLYSIS

REACTIONS (3)
  - HAEMOLYSIS [None]
  - IRON OVERLOAD [None]
  - PHLEBOTOMY [None]
